FAERS Safety Report 7274665-3 (Version None)
Quarter: 2011Q1

REPORT INFORMATION
  Report Type: 
  Country: None (occurrence: None)
  Receive Date: 20110131
  Receipt Date: 20110131
  Transmission Date: 20110831
  Serious: Yes (Hospitalization)
  Sender: FDA-Public Use
  Company Number: None

PATIENT

DRUGS (2)
  1. FLUTICASONE PROPIONATE [Suspect]
     Indication: RESPIRATORY TRACT OEDEMA
  2. TPN ELECTROLYTES IN PLASTIC CONTAINER [Suspect]

REACTIONS (2)
  - BLOOD GLUCOSE DECREASED [None]
  - ADRENAL SUPPRESSION [None]
